FAERS Safety Report 10560033 (Version 1)
Quarter: 2014Q4

REPORT INFORMATION
  Report Type: Spontaneous
  Country: US (occurrence: None)
  Receive Date: 20141031
  Receipt Date: 20141031
  Transmission Date: 20150529
  Serious: No
  Sender: FDA-Public Use
  Company Number: None

PATIENT
  Age: 49 Year
  Sex: Female
  Weight: 73.94 kg

DRUGS (1)
  1. AMITRIPTYLINE [Suspect]
     Active Substance: AMITRIPTYLINE
     Indication: INSOMNIA
     Dosage: 2 PILLS, AT BEDTIME, TAKEN BY MOUTH
     Route: 048
     Dates: end: 20140725

REACTIONS (4)
  - Butterfly rash [None]
  - Photosensitivity reaction [None]
  - Fatigue [None]
  - Urticaria [None]

NARRATIVE: CASE EVENT DATE: 20140725
